FAERS Safety Report 6321560-X (Version None)
Quarter: 2009Q3

REPORT INFORMATION
  Report Type: 
  Country: None (occurrence: None)
  Receive Date: 20090821
  Receipt Date: 20090821
  Transmission Date: 20100115
  Serious: No
  Sender: FDA-Public Use
  Company Number: None

PATIENT
  Age: 50 Year
  Sex: Male
  Weight: 106.5953 kg

DRUGS (1)
  1. ZICAM COLD REMEDY GEL SWABS ZICAM LLC [Suspect]
     Indication: NASOPHARYNGITIS
     Dosage: 1 SWAB EVERY FOUR HOURS NASAL
     Route: 045
     Dates: start: 20060801, end: 20090526

REACTIONS (2)
  - AGEUSIA [None]
  - ANOSMIA [None]
